FAERS Safety Report 18439121 (Version 3)
Quarter: 2021Q2

REPORT INFORMATION
  Report Type: Spontaneous
  Country: US (occurrence: US)
  Receive Date: 20201029
  Receipt Date: 20210428
  Transmission Date: 20210717
  Serious: No
  Sender: FDA-Public Use
  Company Number: US-AKCEA THERAPEUTICS-2020IS001427

PATIENT
  Age: 80 Year
  Sex: Male
  Weight: 93.2 kg

DRUGS (8)
  1. TEGSEDI [Suspect]
     Active Substance: INOTERSEN SODIUM
     Indication: HEREDITARY NEUROPATHIC AMYLOIDOSIS
     Route: 058
     Dates: start: 20200722
  2. BUMETANIDE. [Concomitant]
     Active Substance: BUMETANIDE
     Route: 065
  3. TEGSEDI [Suspect]
     Active Substance: INOTERSEN SODIUM
     Route: 058
  4. XALATAN [Concomitant]
     Active Substance: LATANOPROST
     Route: 065
  5. MULTIVITAMIN /00097801/ [Concomitant]
     Active Substance: VITAMINS
     Route: 065
  6. ISSD (INTEGRATED SYRINGE SAFETY DEVICE) [Suspect]
     Active Substance: DEVICE
  7. CHOLECALCIFEROL [Concomitant]
     Active Substance: CHOLECALCIFEROL
     Route: 065
  8. FLOMAX [Concomitant]
     Active Substance: TAMSULOSIN HYDROCHLORIDE
     Route: 065

REACTIONS (13)
  - Urinary occult blood positive [Unknown]
  - Decreased appetite [Unknown]
  - Blood creatinine increased [Unknown]
  - Protein urine present [Unknown]
  - Urine protein/creatinine ratio abnormal [Unknown]
  - Glomerular filtration rate decreased [Unknown]
  - Platelet count decreased [Unknown]
  - Dyspnoea [Unknown]
  - Hereditary neuropathic amyloidosis [Unknown]
  - Urine ketone body present [Unknown]
  - Weight decreased [Unknown]
  - Device malfunction [Unknown]
  - Red blood cells urine positive [Unknown]
